FAERS Safety Report 7915704-3 (Version None)
Quarter: 2011Q4

REPORT INFORMATION
  Report Type: 
  Country: None (occurrence: None)
  Receive Date: 20111115
  Receipt Date: 20110620
  Transmission Date: 20120403
  Serious: Yes (Other)
  Sender: FDA-Public Use
  Company Number: ZA-GLAXOSMITHKLINE-B0728916A

PATIENT
  Sex: Female

DRUGS (1)
  1. WELLBUTRIN SR [Suspect]
     Indication: PRODUCT USED FOR UNKNOWN INDICATION
     Route: 065
     Dates: start: 20110601

REACTIONS (7)
  - PALPITATIONS [None]
  - HEADACHE [None]
  - WEIGHT INCREASED [None]
  - MEMORY IMPAIRMENT [None]
  - CRYING [None]
  - IMPATIENCE [None]
  - AGGRESSION [None]
